FAERS Safety Report 5311056-6 (Version None)
Quarter: 2007Q2

REPORT INFORMATION
  Report Type: 
  Country: None (occurrence: None)
  Receive Date: 20070430
  Receipt Date: 20070418
  Transmission Date: 20071010
  Serious: Yes (Hospitalization)
  Sender: FDA-Public Use
  Company Number: FR-JNJFOC-20070200037

PATIENT
  Age: 80 Year
  Sex: Female

DRUGS (13)
  1. RISPERDAL [Suspect]
     Indication: DRUG USE FOR UNKNOWN INDICATION
     Route: 048
  2. ACETAMINOPHEN W/ PROPOXYPHENE HCL [Suspect]
     Indication: DRUG USE FOR UNKNOWN INDICATION
     Route: 048
  3. CHONDROSULF [Suspect]
     Indication: DRUG USE FOR UNKNOWN INDICATION
     Route: 048
  4. LOVENOX [Suspect]
     Indication: DRUG USE FOR UNKNOWN INDICATION
     Route: 058
  5. ARICEPT [Suspect]
     Indication: DRUG USE FOR UNKNOWN INDICATION
     Route: 048
  6. DEXTRARINE PHENYLBUTAZONE [Suspect]
     Indication: DRUG USE FOR UNKNOWN INDICATION
     Route: 061
  7. ACUPAN [Concomitant]
     Route: 042
  8. ZOPHREN [Concomitant]
     Route: 042
  9. SUFENTA [Concomitant]
     Route: 042
  10. DIPRIVAN [Concomitant]
     Route: 042
  11. INIPOMP [Concomitant]
  12. CEFAMANDOLE NAFATE [Concomitant]
  13. DAFALGAN [Concomitant]

REACTIONS (1)
  - AGRANULOCYTOSIS [None]
